FAERS Safety Report 6108926-8 (Version None)
Quarter: 2009Q1

REPORT INFORMATION
  Report Type: 
  Country: None (occurrence: None)
  Receive Date: 20090310
  Receipt Date: 20090302
  Transmission Date: 20090719
  Serious: Yes (Hospitalization)
  Sender: FDA-Public Use
  Company Number: NL-PURDUE-GBR_2009_0004915

PATIENT
  Age: 77 Year
  Sex: Female

DRUGS (3)
  1. OXYCONTIN [Suspect]
     Indication: SPINAL FRACTURE
     Dosage: 10 MG, BID
     Route: 065
     Dates: start: 20080609, end: 20080612
  2. MORPHINE SULFATE [Concomitant]
     Indication: PAIN
     Dosage: UNK, SINGLE
     Route: 030
     Dates: start: 20080609, end: 20080609
  3. MOVICOLON [Concomitant]
     Indication: CONSTIPATION
     Dosage: UNK, UNK
     Route: 048
     Dates: start: 20080609, end: 20080627

REACTIONS (1)
  - APATHY [None]
